FAERS Safety Report 8578154-5 (Version None)
Quarter: 2012Q3

REPORT INFORMATION
  Report Type: 
  Country: None (occurrence: None)
  Receive Date: 20120808
  Receipt Date: 20120731
  Transmission Date: 20120928
  Serious: Yes (Death)
  Sender: FDA-Public Use
  Company Number: US-CELGENEUS-163-21880-12071324

PATIENT
  Sex: Female
  Weight: 100.79 kg

DRUGS (14)
  1. REVLIMID [Suspect]
     Indication: MULTIPLE MYELOMA
     Dosage: 10 MILLIGRAM
     Route: 048
     Dates: start: 20110120, end: 20120614
  2. KLOR-CON [Concomitant]
     Dosage: 8 MILLIEQUIVALENTS
     Route: 065
  3. LISINOPRIL [Concomitant]
     Dosage: 2.5 MILLIGRAM
     Route: 065
  4. XANAX [Concomitant]
     Dosage: .25 MILLIGRAM
     Route: 065
  5. SPIRONOLACTONE AND HYDROCHLOROTHIAZIDE [Concomitant]
     Dosage: 25/25MG
     Route: 065
  6. AMLODIPINE [Concomitant]
     Dosage: 2.5 MILLIGRAM
     Route: 065
  7. FUROSEMIDE [Concomitant]
     Dosage: 20 MILLIGRAM
     Route: 065
  8. BACTRIM [Concomitant]
     Route: 065
  9. PREVACID [Concomitant]
     Dosage: 30 MILLIGRAM
     Route: 065
  10. ZYRTEC [Concomitant]
     Dosage: 10 MILLIGRAM
     Route: 065
  11. PROCHLORPERAZINE MALEATE [Concomitant]
     Dosage: 5 MILLIGRAM
     Route: 065
  12. ZOLPIDEM [Concomitant]
     Dosage: 5 MILLIGRAM
     Route: 065
  13. GLIPIZIDE [Concomitant]
     Dosage: 5 MILLIGRAM
     Route: 065
  14. CALCIUM [Concomitant]
     Dosage: 600
     Route: 065

REACTIONS (2)
  - RESPIRATORY FAILURE [None]
  - PNEUMONIA [None]
